FAERS Safety Report 8775856 (Version 2)
Quarter: 2013Q2

REPORT INFORMATION
  Report Type: Spontaneous
  Country: US (occurrence: US)
  Receive Date: 20120910
  Receipt Date: 20130517
  Transmission Date: 20140414
  Serious: No
  Sender: FDA-Public Use
  Company Number: US-009507513-1208USA011334

PATIENT
  Age: 19 Year
  Sex: Female

DRUGS (3)
  1. NEXPLANON [Suspect]
     Dosage: UNK
     Dates: start: 20120817, end: 20121205
  2. NEXPLANON [Suspect]
     Dosage: UNK
     Dates: start: 201112
  3. NEXPLANON [Suspect]
     Dosage: UNK
     Dates: start: 20120817, end: 20120817

REACTIONS (6)
  - Haemorrhage [Unknown]
  - Device expulsion [Unknown]
  - Device difficult to use [Unknown]
  - Device deployment issue [Unknown]
  - Product quality issue [Unknown]
  - Weight increased [Unknown]
